FAERS Safety Report 7400023-4 (Version None)
Quarter: 2011Q2

REPORT INFORMATION
  Report Type: 
  Country: None (occurrence: None)
  Receive Date: 20110407
  Receipt Date: 20110328
  Transmission Date: 20111010
  Serious: Yes (Disabling)
  Sender: FDA-Public Use
  Company Number: GB-JNJFOC-20110401962

PATIENT
  Age: 79 Year
  Sex: Male
  Weight: 86.2 kg

DRUGS (8)
  1. OMEPRAZOLE [Concomitant]
  2. ASPIRIN [Concomitant]
  3. ATORVASTATIN CALCIUM [Concomitant]
  4. LISINOPRIL [Concomitant]
  5. TRAMADOL HCL [Suspect]
     Indication: PRODUCT USED FOR UNKNOWN INDICATION
     Route: 065
  6. ATENOLOL [Concomitant]
  7. PARACETAMOL [Concomitant]
  8. IBUPROFEN [Concomitant]

REACTIONS (2)
  - CONFUSIONAL STATE [None]
  - NERVOUS SYSTEM DISORDER [None]
